FAERS Safety Report 13889427 (Version 1)
Quarter: 2017Q3

REPORT INFORMATION
  Report Type: Spontaneous
  Country: US (occurrence: US)
  Receive Date: 20170822
  Receipt Date: 20170822
  Transmission Date: 20171127
  Serious: No
  Sender: FDA-Public Use
  Company Number: US-ENDO PHARMACEUTICALS INC-2016-004529

PATIENT
  Sex: Male

DRUGS (1)
  1. TESTOPEL [Suspect]
     Active Substance: TESTOSTERONE
     Indication: PRODUCT USED FOR UNKNOWN INDICATION
     Dosage: 12 PELLETS IMPLANTED IN THE UPPER RIGHT QUADRANT OF THE BUTTOCKS
     Route: 065
     Dates: start: 201606

REACTIONS (4)
  - Prescribed overdose [Unknown]
  - Implant site erythema [Unknown]
  - Expulsion of medication [Unknown]
  - Implant site pain [Unknown]

NARRATIVE: CASE EVENT DATE: 201606
